FAERS Safety Report 12733904 (Version 2)
Quarter: 2018Q1

REPORT INFORMATION
  Report Type: Spontaneous
  Country: MX (occurrence: MX)
  Receive Date: 20160912
  Receipt Date: 20180306
  Transmission Date: 20180508
  Serious: Yes (Life-Threatening, Disabling)
  Sender: FDA-Public Use
  Company Number: MX-ROCHE-1828610

PATIENT
  Age: 47 Year
  Sex: Female
  Weight: 58 kg

DRUGS (8)
  1. COPEGUS [Suspect]
     Active Substance: RIBAVIRIN
     Dosage: 52 WEEKS OF TREATMENT
     Route: 048
     Dates: start: 2009, end: 2010
  2. PEGASYS [Suspect]
     Active Substance: PEGINTERFERON ALFA-2A
     Dosage: 52 WEEKS OF TREATMENT
     Route: 058
     Dates: start: 2007, end: 2008
  3. PEGASYS [Suspect]
     Active Substance: PEGINTERFERON ALFA-2A
     Dosage: 52 WEEKS OF TREATMENT
     Route: 058
     Dates: start: 2008, end: 2009
  4. PEGASYS [Suspect]
     Active Substance: PEGINTERFERON ALFA-2A
     Indication: HEPATITIS C
     Dosage: 52 WEEKS OF TREATMENT
     Route: 058
     Dates: start: 200610, end: 2007
  5. PEGASYS [Suspect]
     Active Substance: PEGINTERFERON ALFA-2A
     Dosage: 52 WEEKS OF TREATMENT
     Route: 058
     Dates: start: 2009, end: 2010
  6. COPEGUS [Suspect]
     Active Substance: RIBAVIRIN
     Indication: HEPATITIS C
     Dosage: 52 WEEKS OF TREATMENT
     Route: 048
     Dates: start: 200610, end: 2007
  7. COPEGUS [Suspect]
     Active Substance: RIBAVIRIN
     Dosage: 52 WEEKS OF TREATMENT
     Route: 048
     Dates: start: 2007, end: 2008
  8. COPEGUS [Suspect]
     Active Substance: RIBAVIRIN
     Dosage: 52 WEEKS OF TREATMENT
     Route: 048
     Dates: start: 2008, end: 2009

REACTIONS (4)
  - Weight decreased [Recovered/Resolved]
  - Vomiting [Recovered/Resolved]
  - Bone pain [Recovering/Resolving]
  - Pulmonary fibrosis [Not Recovered/Not Resolved]

NARRATIVE: CASE EVENT DATE: 200610
